FAERS Safety Report 25724269 (Version 1)
Quarter: 2025Q3

REPORT INFORMATION
  Report Type: Spontaneous
  Country: US (occurrence: US)
  Receive Date: 20250826
  Receipt Date: 20250826
  Transmission Date: 20251020
  Serious: Yes (Other)
  Sender: BLUEPRINT MEDICINES
  Company Number: US-Blueprint Medicines Corporation-2025-AER-01861

PATIENT
  Age: 44 Year
  Sex: Female

DRUGS (1)
  1. AYVAKIT [Suspect]
     Active Substance: AVAPRITINIB
     Indication: Systemic mastocytosis
     Route: 065
     Dates: start: 20250612

REACTIONS (8)
  - Major depression [Unknown]
  - Abdominal distension [Unknown]
  - Raynaud^s phenomenon [Unknown]
  - Inflammation [Unknown]
  - Hypersensitivity [Unknown]
  - Fluid retention [Unknown]
  - Menopause [Unknown]
  - Dizziness [Unknown]

NARRATIVE: CASE EVENT DATE: 20250820
